FAERS Safety Report 4821415-3 (Version None)
Quarter: 2005Q4

REPORT INFORMATION
  Report Type: 
  Country: None (occurrence: None)
  Receive Date: 20051103
  Receipt Date: 20051024
  Transmission Date: 20060501
  Serious: Yes (Other)
  Sender: FDA-Public Use
  Company Number: 200519487GDDC

PATIENT
  Age: 58 Year
  Sex: Female

DRUGS (12)
  1. ARAVA [Suspect]
  2. FERROUS SULFATE TAB [Concomitant]
  3. LANSOPRAZOLE [Concomitant]
  4. PREDNISOLONE [Concomitant]
  5. COLECALCIFEROL, CALCIUM CARBONATE (CALCICHEW D3) [Concomitant]
  6. DEXAMETHASONE [Concomitant]
  7. ALENDRONIC ACID [Concomitant]
  8. AMITRIPTYLINE HCL [Concomitant]
  9. DIHYDROCODEINE [Concomitant]
  10. DICLOFENAC [Concomitant]
  11. GLUCOSAMINE [Concomitant]
  12. COLECALCIFEROL, CALCIUM CARBONATE (CALCICHEW-D3) [Concomitant]

REACTIONS (2)
  - ASPARTATE AMINOTRANSFERASE INCREASED [None]
  - GAMMA-GLUTAMYLTRANSFERASE INCREASED [None]
